FAERS Safety Report 19144848 (Version 3)
Quarter: 2022Q1

REPORT INFORMATION
  Report Type: Report from Study
  Country: JP (occurrence: JP)
  Receive Date: 20210416
  Receipt Date: 20220331
  Transmission Date: 20220423
  Serious: Yes (Other)
  Sender: FDA-Public Use
  Company Number: JP-CELLTRION INC.-2021JP003673

PATIENT

DRUGS (9)
  1. INFLIXIMAB-DYYB [Suspect]
     Active Substance: INFLIXIMAB-DYYB
     Indication: Colitis ulcerative
     Dosage: 285 MILLIGRAM
     Route: 041
     Dates: start: 20181114, end: 20181114
  2. INFLIXIMAB-DYYB [Suspect]
     Active Substance: INFLIXIMAB-DYYB
     Dosage: 275 MILLIGRAM
     Route: 041
     Dates: start: 20190109, end: 20190109
  3. INFLIXIMAB-DYYB [Suspect]
     Active Substance: INFLIXIMAB-DYYB
     Dosage: 280 MILLIGRAM
     Route: 041
     Dates: start: 20190306, end: 20190306
  4. INFLIXIMAB-DYYB [Suspect]
     Active Substance: INFLIXIMAB-DYYB
     Dosage: 290 MILLIGRAM
     Route: 041
     Dates: start: 20190501, end: 20190501
  5. INFLIXIMAB-DYYB [Suspect]
     Active Substance: INFLIXIMAB-DYYB
     Dosage: 300 MILLIGRAM
     Route: 041
     Dates: start: 20191016, end: 20191016
  6. INFLIXIMAB-DYYB [Suspect]
     Active Substance: INFLIXIMAB-DYYB
     Dosage: 310 MILLIGRAM
     Route: 041
     Dates: start: 20201111, end: 20201111
  7. INFLIXIMAB-DYYB [Suspect]
     Active Substance: INFLIXIMAB-DYYB
     Dosage: 315 MILLIGRAM
     Route: 041
     Dates: start: 20211013, end: 20211013
  8. MESALAMINE [Concomitant]
     Active Substance: MESALAMINE
     Dosage: 4000 MILLIGRAM/DAY
     Route: 048
  9. AZATHIOPRINE [Concomitant]
     Active Substance: AZATHIOPRINE
     Dosage: 100 MILLIGRAM/DAY
     Route: 048

REACTIONS (11)
  - Helicobacter infection [Recovered/Resolved]
  - Chronic gastritis [Not Recovered/Not Resolved]
  - Hand dermatitis [Recovered/Resolved]
  - Haemorrhoidal haemorrhage [Not Recovered/Not Resolved]
  - Tinea versicolour [Recovered/Resolved]
  - Anaemia [Recovered/Resolved]
  - Anaemia [Unknown]
  - Eczema [Not Recovered/Not Resolved]
  - Underdose [Unknown]
  - Overdose [Unknown]
  - Off label use [Unknown]

NARRATIVE: CASE EVENT DATE: 20190306
